FAERS Safety Report 11783961 (Version 1)
Quarter: 2015Q4

REPORT INFORMATION
  Report Type: Other
  Country: US (occurrence: US)
  Receive Date: 20151128
  Receipt Date: 20151128
  Transmission Date: 20160305
  Serious: Yes (Hospitalization, Other)
  Sender: FDA-Public Use
  Company Number: US-MICRO LABS LIMITED-ML2015-01353

PATIENT
  Age: 69 Year
  Sex: Female

DRUGS (1)
  1. SIMVASTATIN. [Suspect]
     Active Substance: SIMVASTATIN
     Indication: PRODUCT USED FOR UNKNOWN INDICATION
     Dosage: 40 MG FOR THREE YEARS
     Route: 065

REACTIONS (2)
  - Immune-mediated necrotising myopathy [Unknown]
  - Respiratory failure [Not Recovered/Not Resolved]
